FAERS Safety Report 8558347 (Version 2)
Quarter: 2013Q2

REPORT INFORMATION
  Report Type: Spontaneous
  Country: US (occurrence: US)
  Receive Date: 20120511
  Receipt Date: 20130510
  Transmission Date: 20140414
  Serious: No
  Sender: FDA-Public Use
  Company Number: US-GLAXOSMITHKLINE-A0962696A

PATIENT
  Age: 84 Year
  Sex: Female

DRUGS (7)
  1. TYKERB [Suspect]
     Indication: BREAST CANCER
     Dosage: 1000MG PER DAY
     Route: 048
     Dates: start: 20111006, end: 20120730
  2. HERCEPTIN [Suspect]
     Indication: BREAST CANCER
  3. ACTONEL [Concomitant]
  4. OMEGA 3 [Concomitant]
  5. B COMPLEX [Concomitant]
  6. CENTRUM SILVER [Concomitant]
  7. CITRACAL + D [Concomitant]

REACTIONS (24)
  - Acne [Unknown]
  - Neuralgia [Unknown]
  - Sneezing [Recovered/Resolved]
  - Spinal pain [Unknown]
  - Back pain [Unknown]
  - Dry mouth [Unknown]
  - Vulvovaginal dryness [Recovering/Resolving]
  - Movement disorder [Recovering/Resolving]
  - Sciatica [Unknown]
  - Fatigue [Recovering/Resolving]
  - Frequent bowel movements [Recovering/Resolving]
  - Milia [Recovering/Resolving]
  - Rash [Recovered/Resolved]
  - Dry skin [Recovered/Resolved]
  - Mouth ulceration [Unknown]
  - Dysuria [Unknown]
  - Vulvovaginal discomfort [Unknown]
  - Musculoskeletal pain [Unknown]
  - Diarrhoea [Recovered/Resolved]
  - Gingival inflammation [Unknown]
  - Gingival pain [Unknown]
  - Lung disorder [Unknown]
  - Cardiac disorder [Unknown]
  - Fungal infection [Unknown]
